FAERS Safety Report 7074176-4 (Version None)
Quarter: 2010Q4

REPORT INFORMATION
  Report Type: 
  Country: None (occurrence: None)
  Receive Date: 20101020
  Receipt Date: 20101004
  Transmission Date: 20110411
  Serious: Yes (Disabling, Other)
  Sender: FDA-Public Use
  Company Number: ACO_02479_2010

PATIENT
  Age: 66 Year
  Sex: Female
  Weight: 90.7194 kg

DRUGS (4)
  1. AMPYRA [Suspect]
     Indication: GAIT DISTURBANCE
     Dosage: DF
     Dates: start: 20100628, end: 20100811
  2. VYTORIN [Concomitant]
  3. K-DUR [Concomitant]
  4. FOSAMAX [Concomitant]

REACTIONS (5)
  - ABASIA [None]
  - BALANCE DISORDER [None]
  - CONDITION AGGRAVATED [None]
  - FALL [None]
  - MEMORY IMPAIRMENT [None]
